FAERS Safety Report 7406525-9 (Version None)
Quarter: 2011Q2

REPORT INFORMATION
  Report Type: 
  Country: None (occurrence: None)
  Receive Date: 20110406
  Receipt Date: 20110406
  Transmission Date: 20111010
  Serious: Yes (Disabling, Other)
  Sender: FDA-Public Use
  Company Number: None

PATIENT
  Sex: Female
  Weight: 70.3075 kg

DRUGS (1)
  1. MIRENA [Suspect]
     Indication: CONTRACEPTION
     Dosage: 5 YEARS PERMANENT INTRA-UTERINE
     Route: 015
     Dates: start: 20080110, end: 20110301

REACTIONS (5)
  - DEPRESSION [None]
  - WEIGHT INCREASED [None]
  - MOOD ALTERED [None]
  - AMNESIA [None]
  - BREAST PAIN [None]
